FAERS Safety Report 13598155 (Version 1)
Quarter: 2017Q2

REPORT INFORMATION
  Report Type: Spontaneous
  Country: CH (occurrence: CH)
  Receive Date: 20170531
  Receipt Date: 20170531
  Transmission Date: 20170830
  Serious: Yes (Other)
  Sender: FDA-Public Use
  Company Number: CH-ASTRAZENECA-2017SE55006

PATIENT
  Age: 31785 Day
  Sex: Female

DRUGS (9)
  1. NEXIUM [Suspect]
     Active Substance: ESOMEPRAZOLE MAGNESIUM
     Route: 048
     Dates: start: 2016, end: 20170505
  2. CALCIMAGON [Concomitant]
     Active Substance: CALCIUM
  3. SEROQUEL [Concomitant]
     Active Substance: QUETIAPINE FUMARATE
     Dates: start: 20170505, end: 20170512
  4. EUTHYROX [Concomitant]
     Active Substance: LEVOTHYROXINE SODIUM
  5. COVERSUM [Concomitant]
     Active Substance: PERINDOPRIL
     Dates: start: 20170505
  6. REMINYL [Suspect]
     Active Substance: GALANTAMINE
     Route: 048
  7. DISTRANEURIN [Concomitant]
     Active Substance: CLOMETHIAZOLE
  8. ASPIRINE [Concomitant]
     Active Substance: ASPIRIN
  9. SORTIS [Concomitant]
     Active Substance: ATORVASTATIN

REACTIONS (1)
  - Electrocardiogram QT prolonged [Recovered/Resolved]

NARRATIVE: CASE EVENT DATE: 20170505
